FAERS Safety Report 7372622-X (Version None)
Quarter: 2011Q1

REPORT INFORMATION
  Report Type: 
  Country: None (occurrence: None)
  Receive Date: 20110324
  Receipt Date: 20110225
  Transmission Date: 20110831
  Serious: No
  Sender: FDA-Public Use
  Company Number: US-B.I. PHARMACEUTICALS,INC./RIDGEFIELD-2011-BP-06170BP

PATIENT
  Sex: Female

DRUGS (10)
  1. FLUVOXAMINE [Concomitant]
     Indication: OBSESSIVE-COMPULSIVE DISORDER
     Dosage: 100 MG
     Route: 048
  2. METOPROLOL [Concomitant]
     Dosage: 100 MG
     Route: 048
     Dates: start: 20110214
  3. MULTIVITAMIN C [Concomitant]
     Indication: ROUTINE HEALTH MAINTENANCE
  4. PRADAXA [Suspect]
     Indication: ATRIAL FIBRILLATION
     Dosage: 300 MG
     Route: 048
     Dates: start: 20110214
  5. RISPERDONE [Concomitant]
     Indication: SERUM SEROTONIN DECREASED
     Dosage: 0.25 MG
     Route: 048
  6. TOPIRAMATE [Concomitant]
     Indication: SERUM SEROTONIN DECREASED
     Dosage: 50 MG
     Route: 048
  7. LOVASTATIN [Concomitant]
     Indication: BLOOD CHOLESTEROL INCREASED
     Dosage: 20 MG
     Route: 048
  8. ALPRAZOLAM [Concomitant]
     Indication: ANXIETY DISORDER
     Dosage: 0.25 UNK
     Route: 048
  9. OXYBUTYNIN [Concomitant]
     Indication: BLADDER SPASM
     Dosage: 5 MG
     Route: 048
  10. MULTIVITAMIN C [Concomitant]
     Indication: PROPHYLAXIS
     Route: 048

REACTIONS (3)
  - DYSPEPSIA [None]
  - SENSATION OF FOREIGN BODY [None]
  - DYSPHAGIA [None]
